FAERS Safety Report 12304262 (Version 1)
Quarter: 2016Q2

REPORT INFORMATION
  Report Type: Spontaneous
  Country: US (occurrence: None)
  Receive Date: 20160425
  Receipt Date: 20160425
  Transmission Date: 20160815
  Serious: Yes (Disabling)
  Sender: FDA-Public Use
  Company Number: None

PATIENT
  Age: 54 Year
  Sex: Female
  Weight: 69.85 kg

DRUGS (5)
  1. LOSARTIN POTASSIUM 100 MG UNKNOWN [Suspect]
     Active Substance: LOSARTAN POTASSIUM
     Indication: HYPERTENSION
     Route: 048
     Dates: start: 20160201, end: 20160422
  2. ATORVASTATIN [Concomitant]
     Active Substance: ATORVASTATIN
  3. HYDROXYCHLOROQUINE [Concomitant]
     Active Substance: HYDROXYCHLOROQUINE
  4. LOSARTIN POTASSIUM 100 MG UNKNOWN [Suspect]
     Active Substance: LOSARTAN POTASSIUM
     Indication: RENAL DISORDER
     Route: 048
     Dates: start: 20160201, end: 20160422
  5. FUROSEMIDE 20 MG [Suspect]
     Active Substance: FUROSEMIDE
     Indication: FLUID OVERLOAD
     Route: 048
     Dates: start: 20160201, end: 20160422

REACTIONS (5)
  - Paraesthesia [None]
  - Arthralgia [None]
  - Hypoaesthesia [None]
  - Peripheral swelling [None]
  - Pelvic pain [None]

NARRATIVE: CASE EVENT DATE: 20160422
